FAERS Safety Report 24664843 (Version 1)
Quarter: 2024Q4

REPORT INFORMATION
  Report Type: Spontaneous
  Country: US (occurrence: None)
  Receive Date: 20241125
  Receipt Date: 20241125
  Transmission Date: 20250114
  Serious: Yes (Disabling, Other)
  Sender: Public
  Company Number: None

PATIENT
  Age: 81 Year
  Sex: Female

DRUGS (2)
  1. SYFOVRE [Suspect]
     Active Substance: PEGCETACOPLAN
     Indication: Dry age-related macular degeneration
     Dosage: OTHER FREQUENCY : 6 WEEKS;?OTHER ROUTE : INTRAVITREAL;?
     Route: 050
     Dates: start: 20241017, end: 20241017
  2. SYFOVRE [Concomitant]
     Active Substance: PEGCETACOPLAN
     Dates: start: 20241017

REACTIONS (8)
  - Photophobia [None]
  - Injection site foreign body sensation in eye [None]
  - Erythema of eyelid [None]
  - Swelling of eyelid [None]
  - Pain [None]
  - Visual field defect [None]
  - Ocular procedural complication [None]
  - Post procedural complication [None]

NARRATIVE: CASE EVENT DATE: 20241030
